FAERS Safety Report 5841577-9 (Version None)
Quarter: 2008Q3

REPORT INFORMATION
  Report Type: 
  Country: None (occurrence: None)
  Receive Date: 20080731
  Receipt Date: 20080609
  Transmission Date: 20090109
  Serious: No
  Sender: FDA-Public Use
  Company Number: US200805002842

PATIENT
  Age: 54 Year
  Sex: Male

DRUGS (6)
  1. BYETTA [Suspect]
     Indication: TYPE 2 DIABETES MELLITUS
     Dosage: 5 UG, 2/D, SUBCUTANEOUS
     Route: 058
     Dates: start: 20080301
  2. ACCUPRIL [Concomitant]
  3. LASIX [Concomitant]
  4. POTASSIUM /00031402/ (POTASSIUM CHLORIDE) [Concomitant]
  5. PREVACID [Concomitant]
  6. BUSPAR [Concomitant]

REACTIONS (3)
  - ARTHRALGIA [None]
  - JOINT STIFFNESS [None]
  - VISUAL ACUITY REDUCED [None]
